FAERS Safety Report 5007574-0 (Version None)
Quarter: 2006Q2

REPORT INFORMATION
  Report Type: 
  Country: None (occurrence: None)
  Receive Date: 20060522
  Receipt Date: 20060515
  Transmission Date: 20061013
  Serious: Yes (Life-Threatening)
  Sender: FDA-Public Use
  Company Number: NO-AVENTIS-200615198GDDC

PATIENT
  Age: 86 Year
  Sex: Female

DRUGS (4)
  1. CLAFORAN [Suspect]
     Indication: PNEUMONIA
     Dates: start: 20060404, end: 20060406
  2. INSULATARD NPH HUMAN [Concomitant]
     Indication: DIABETES MELLITUS INSULIN-DEPENDENT
  3. INSULATARD NPH HUMAN [Concomitant]
  4. ALBYL-E [Concomitant]
     Indication: CEREBRAL INFARCTION
     Route: 048

REACTIONS (3)
  - ANAPHYLACTIC REACTION [None]
  - PHARYNGEAL OEDEMA [None]
  - URTICARIA [None]
